FAERS Safety Report 5196850-7 (Version None)
Quarter: 2007Q1

REPORT INFORMATION
  Report Type: 
  Country: None (occurrence: None)
  Receive Date: 20070103
  Receipt Date: 20061226
  Transmission Date: 20070707
  Serious: Yes (Hospitalization)
  Sender: FDA-Public Use
  Company Number: 2006AP06178

PATIENT
  Age: 3 Year
  Sex: Female

DRUGS (6)
  1. PULMICORT RESPULES [Suspect]
     Indication: ASTHMA
     Route: 055
     Dates: start: 20060916
  2. PULMICORT RESPULES [Suspect]
     Dosage: DOSE REDUCED
     Route: 055
  3. ONON [Concomitant]
     Indication: ASTHMA
     Route: 048
  4. THEOPHYLLINE [Concomitant]
     Indication: ASTHMA
  5. INTAL [Concomitant]
     Indication: ASTHMA
  6. MEPTIN [Concomitant]
     Indication: ASTHMA

REACTIONS (1)
  - PNEUMONIA [None]
